FAERS Safety Report 11185496 (Version 2)
Quarter: 2015Q2

REPORT INFORMATION
  Report Type: Report from Study
  Country: IT (occurrence: IT)
  Receive Date: 20150612
  Receipt Date: 20150629
  Transmission Date: 20150821
  Serious: Yes (Death, Hospitalization, Other)
  Sender: FDA-Public Use
  Company Number: IT-ABBVIE-15P-083-1406968-00

PATIENT
  Age: 65 Year
  Sex: Female

DRUGS (18)
  1. TARGOSID [Concomitant]
     Active Substance: TEICOPLANIN
     Indication: INFECTED SKIN ULCER
     Dates: start: 20150420, end: 20150512
  2. TIROSINT [Concomitant]
     Active Substance: LEVOTHYROXINE SODIUM
     Indication: HYPOTHYROIDISM
     Route: 048
     Dates: end: 20150604
  3. ZYLORIC [Concomitant]
     Active Substance: ALLOPURINOL
     Indication: HYPERURICAEMIA
     Route: 048
     Dates: end: 20150507
  4. NEXIUM [Concomitant]
     Active Substance: ESOMEPRAZOLE MAGNESIUM
     Indication: PROPHYLAXIS AGAINST GASTROINTESTINAL ULCER
     Route: 048
     Dates: end: 20150604
  5. ABT-450/RITONAVIR/ABT-267 [Suspect]
     Active Substance: OMBITASVIR\PARITAPREVIR\RITONAVIR
     Indication: CHRONIC HEPATITIS C
     Route: 048
     Dates: start: 20150505, end: 20150517
  6. ABT-333 [Suspect]
     Active Substance: DASABUVIR
     Route: 048
     Dates: start: 20150520, end: 20150527
  7. TENORMIN [Concomitant]
     Active Substance: ATENOLOL
     Indication: HYPERTENSION
     Route: 048
     Dates: end: 20150519
  8. QUESTRAN [Concomitant]
     Active Substance: CHOLESTYRAMINE
     Indication: CHOLESTATIC PRURITUS
     Route: 048
     Dates: end: 20150507
  9. COPEGUS [Concomitant]
     Active Substance: RIBAVIRIN
     Indication: CHRONIC HEPATITIS C
     Route: 048
     Dates: start: 20150505, end: 20150509
  10. LASIX [Concomitant]
     Active Substance: FUROSEMIDE
     Indication: ASCITES
     Route: 042
     Dates: start: 20150504, end: 20150509
  11. URBASON [Concomitant]
     Active Substance: METHYLPREDNISOLONE
     Indication: PERICARDIAL EFFUSION
     Dosage: 20 MG (1 VIAL X 2/DAY)
     Route: 042
     Dates: start: 20150404, end: 20150511
  12. ABT-450/RITONAVIR/ABT-267 [Suspect]
     Active Substance: OMBITASVIR\PARITAPREVIR\RITONAVIR
     Route: 048
     Dates: start: 20150520, end: 20150527
  13. ABT-333 [Suspect]
     Active Substance: DASABUVIR
     Indication: CHRONIC HEPATITIS C
     Route: 048
     Dates: start: 20150505, end: 20150517
  14. NEXIUM [Concomitant]
     Active Substance: ESOMEPRAZOLE MAGNESIUM
     Indication: PROPHYLAXIS AGAINST GASTROINTESTINAL ULCER
     Route: 048
     Dates: end: 20150604
  15. DEURSIL [Concomitant]
     Active Substance: URSODIOL
     Indication: CHOLESTASIS
     Route: 048
     Dates: end: 20150511
  16. VENACTONE [Concomitant]
     Indication: ASCITES
     Route: 042
     Dates: start: 20150404, end: 20150511
  17. NORVASC [Concomitant]
     Active Substance: AMLODIPINE BESYLATE
     Indication: HYPERTENSION
     Route: 048
     Dates: end: 20150527
  18. LYRICA [Concomitant]
     Active Substance: PREGABALIN
     Indication: NEURALGIA
     Route: 048
     Dates: start: 20150403, end: 20150509

REACTIONS (6)
  - Melaena [Fatal]
  - Dehydration [Not Recovered/Not Resolved]
  - Skin ulcer [Not Recovered/Not Resolved]
  - Renal impairment [Not Recovered/Not Resolved]
  - Vasculitis [Not Recovered/Not Resolved]
  - Diarrhoea [Not Recovered/Not Resolved]

NARRATIVE: CASE EVENT DATE: 20150506
